FAERS Safety Report 16686482 (Version 1)
Quarter: 2019Q3

REPORT INFORMATION
  Report Type: Report from Study
  Country: US (occurrence: US)
  Receive Date: 20190809
  Receipt Date: 20190809
  Transmission Date: 20191004
  Serious: Yes (Hospitalization)
  Sender: FDA-Public Use
  Company Number: US-ROCHE-2374644

PATIENT
  Age: 69 Year
  Sex: Female

DRUGS (2)
  1. OCREVUS [Suspect]
     Active Substance: OCRELIZUMAB
     Indication: RELAPSING MULTIPLE SCLEROSIS
     Route: 065
     Dates: start: 20180816
  2. COPAXONE [Concomitant]
     Active Substance: GLATIRAMER ACETATE

REACTIONS (1)
  - Streptococcal infection [Unknown]

NARRATIVE: CASE EVENT DATE: 20190504
